FAERS Safety Report 5834890-2 (Version None)
Quarter: 2008Q3

REPORT INFORMATION
  Report Type: 
  Country: None (occurrence: None)
  Receive Date: 20080806
  Receipt Date: 20080801
  Transmission Date: 20090109
  Serious: Yes (Death, Life-Threatening, Hospitalization)
  Sender: FDA-Public Use
  Company Number: US-BRISTOL-MYERS SQUIBB COMPANY-14286991

PATIENT
  Age: 64 Year
  Sex: Male
  Weight: 95 kg

DRUGS (23)
  1. CARBOPLATIN [Suspect]
     Indication: NON-SMALL CELL LUNG CANCER
     Dosage: 1 DOSAGEFORM = 1 AUC
     Route: 042
     Dates: start: 20080528, end: 20080528
  2. ALIMTA [Suspect]
     Indication: NON-SMALL CELL LUNG CANCER
     Route: 042
     Dates: start: 20080528, end: 20080528
  3. AVASTIN [Suspect]
     Indication: NON-SMALL CELL LUNG CANCER
     Route: 042
     Dates: start: 20080528, end: 20080528
  4. BLINDED: PLACEBO [Suspect]
     Indication: NON-SMALL CELL LUNG CANCER
     Dosage: 21MAY08-UNKNWN,3D/F, 3/D,ORAL.
     Route: 048
     Dates: start: 20080522, end: 20080522
  5. MULTI-VITAMIN [Concomitant]
     Dosage: TABLET
     Dates: start: 20080115
  6. FOLIC ACID [Concomitant]
     Dates: start: 20080115
  7. VITAMIN B-12 [Concomitant]
     Dates: start: 20080519
  8. ACIPHEX [Concomitant]
     Dates: start: 20080515
  9. VITAMIN E [Concomitant]
     Dates: start: 20080115
  10. VITAMIN D [Concomitant]
     Dates: start: 20080115
  11. ASCORBIC ACID [Concomitant]
     Dates: start: 20080115
  12. MAGNESIUM CITRATE [Concomitant]
     Dates: start: 20080527
  13. SENOKOT [Concomitant]
     Dates: start: 20080515
  14. MIRALAX [Concomitant]
     Dates: start: 20080515
  15. OXYCONTIN [Concomitant]
     Dates: start: 20080606
  16. PERCOCET [Concomitant]
     Dates: start: 20080606
  17. ZOFRAN [Concomitant]
     Dates: start: 20080603
  18. LORAZEPAM [Concomitant]
     Indication: NAUSEA
     Dates: start: 20080613
  19. ALEVE [Concomitant]
  20. SAW PALMETTO [Concomitant]
  21. CITRUCEL [Concomitant]
  22. SODIUM PHOSPHATES [Concomitant]
  23. DARVOCET [Concomitant]

REACTIONS (4)
  - CONSTIPATION [None]
  - DEATH [None]
  - INTESTINAL PERFORATION [None]
  - SEPSIS [None]
